FAERS Safety Report 15560377 (Version 1)
Quarter: 2018Q4

REPORT INFORMATION
  Report Type: Spontaneous
  Country: US (occurrence: US)
  Receive Date: 20181029
  Receipt Date: 20181029
  Transmission Date: 20190205
  Serious: No
  Sender: FDA-Public Use
  Company Number: US-IPSEN BIOPHARMACEUTICALS, INC.-2018-15206

PATIENT
  Sex: Female

DRUGS (11)
  1. CORAL CALCIUM [Concomitant]
     Active Substance: DIETARY SUPPLEMENT
  2. XERMELO [Suspect]
     Active Substance: TELOTRISTAT ETHYL
     Indication: CARCINOID TUMOUR OF THE SMALL BOWEL
     Route: 048
     Dates: start: 20171024
  3. VITAMIN D [Concomitant]
     Active Substance: CHOLECALCIFEROL
  4. FLONASE [Concomitant]
     Active Substance: FLUTICASONE PROPIONATE
  5. ZOFRAN [Concomitant]
     Active Substance: ONDANSETRON HYDROCHLORIDE
  6. IPRATROPIUM SOL [Concomitant]
  7. LOMOTIL [Concomitant]
     Active Substance: ATROPINE SULFATE\DIPHENOXYLATE HYDROCHLORIDE
  8. VESICARE [Concomitant]
     Active Substance: SOLIFENACIN SUCCINATE
  9. LISINOPRIL. [Concomitant]
     Active Substance: LISINOPRIL
  10. MAGNESIUM [Concomitant]
     Active Substance: MAGNESIUM
  11. HYOSCYAMINE. [Concomitant]
     Active Substance: HYOSCYAMINE

REACTIONS (3)
  - Vulvovaginal pain [Unknown]
  - Proctalgia [Unknown]
  - Muscle spasms [Unknown]

NARRATIVE: CASE EVENT DATE: 2018
